FAERS Safety Report 8092021-5 (Version None)
Quarter: 2012Q1

REPORT INFORMATION
  Report Type: 
  Country: None (occurrence: None)
  Receive Date: 20120129
  Receipt Date: 20111117
  Transmission Date: 20120608
  Serious: Yes (Other)
  Sender: FDA-Public Use
  Company Number: US-ABBOTT-11P-163-0868511-00

PATIENT
  Sex: Female
  Weight: 86 kg

DRUGS (3)
  1. HUMIRA [Suspect]
     Indication: COLITIS ULCERATIVE
     Route: 058
     Dates: start: 20080101
  2. YASMIN [Concomitant]
     Indication: PRODUCT USED FOR UNKNOWN INDICATION
  3. LEVOTHYROXINE SODIUM [Concomitant]
     Indication: PRODUCT USED FOR UNKNOWN INDICATION

REACTIONS (7)
  - THYROID CANCER [None]
  - FATIGUE [None]
  - EYE SWELLING [None]
  - EYE PRURITUS [None]
  - WEIGHT INCREASED [None]
  - DRY EYE [None]
  - OFF LABEL USE [None]
